FAERS Safety Report 8906583 (Version 1)
Quarter: 2012Q4

REPORT INFORMATION
  Report Type: Spontaneous
  Country: IT (occurrence: None)
  Receive Date: 20121107
  Receipt Date: 20121107
  Transmission Date: 20130627
  Serious: Yes (Other)
  Sender: FDA-Public Use
  Company Number: DSA_60461_2012

PATIENT
  Age: 71 Year
  Sex: Female

DRUGS (16)
  1. FLUOROURACIL (FLUOROURACIL) [Suspect]
     Indication: RECTAL CANCER
     Dosage: (1 g/m2)
     Route: 040
     Dates: start: 200702, end: 200708
  2. FLUOROURACIL (FLUOROURACIL) [Suspect]
     Indication: METASTASES TO LUNG
     Dosage: (1 g/m2)
     Route: 040
     Dates: start: 200702, end: 200708
  3. FLUOROURACIL (FLUOROURACIL) [Suspect]
     Indication: RECTAL CANCER
     Dosage: over 24 hours
     Dates: start: 200702, end: 200708
  4. FLUOROURACIL (FLUOROURACIL) [Suspect]
     Indication: METASTASES TO LUNG
     Dosage: over 24 hours
     Dates: start: 200702, end: 200708
  5. OXALIPLATIN (OXALIPLATIN) [Suspect]
     Indication: RECTAL CANCER
     Dates: start: 200702, end: 200708
  6. OXALIPLATIN (OXALIPLATIN) [Suspect]
     Indication: METASTASES TO LUNG
     Dates: start: 200702, end: 200708
  7. GEMCITABINE HYDROCHLORIDE [Suspect]
     Indication: RECTAL CANCER
     Dosage: (1 g/m2)
     Dates: start: 200702, end: 200708
  8. GEMCITABINE HYDROCHLORIDE [Suspect]
     Indication: METASTASES TO LUNG
     Dosage: (1 g/m2)
     Dates: start: 200702, end: 200708
  9. FOLINIC ACID [Suspect]
     Indication: RECTAL CANCER
     Dates: start: 200702, end: 200708
  10. FOLINIC ACID [Suspect]
     Indication: METASTASES TO LUNG
     Dates: start: 200702, end: 200708
  11. GRANULOCYTE COLONY STIMULATING FACTOR [Suspect]
     Indication: RECTAL CANCER
     Route: 058
     Dates: start: 200702, end: 200708
  12. GRANULOCYTE COLONY STIMULATING FACTOR [Suspect]
     Indication: METASTASES TO LUNG
     Route: 058
     Dates: start: 200702, end: 200708
  13. ALDESLEUKIN [Suspect]
     Indication: RECTAL CANCER
     Dosage: (0.5 x10E6 IU twice daily subcutaneous), (0.5 MIU twice daily subcutaneous)
     Route: 058
     Dates: start: 200702, end: 200708
  14. ALDESLEUKIN [Suspect]
     Indication: METASTASES TO LUNG
     Dosage: (0.5 x10E6 IU twice daily subcutaneous), (0.5 MIU twice daily subcutaneous)
     Route: 058
     Dates: start: 200702, end: 200708
  15. ALDESLEUKIN [Suspect]
     Indication: RECTAL CANCER
     Route: 058
     Dates: end: 200808
  16. ALDESLEUKIN [Suspect]
     Indication: METASTASES TO LUNG
     Route: 058
     Dates: end: 200808

REACTIONS (7)
  - Pain [None]
  - Musculoskeletal stiffness [None]
  - Swelling [None]
  - Paraesthesia [None]
  - Myalgia [None]
  - Xerophthalmia [None]
  - Dry mouth [None]
